FAERS Safety Report 5226466-5 (Version None)
Quarter: 2007Q1

REPORT INFORMATION
  Report Type: 
  Country: None (occurrence: None)
  Receive Date: 20070201
  Receipt Date: 20060905
  Transmission Date: 20070707
  Serious: Yes (Hospitalization, Other)
  Sender: FDA-Public Use
  Company Number: US-PFIZER INC-2005016042

PATIENT
  Sex: Male

DRUGS (2)
  1. NEURONTIN [Suspect]
     Indication: RESTLESS LEGS SYNDROME
     Dosage: TEXT:UNKNOWN-FREQ:UNKNOWN
     Route: 065
  2. NEURONTIN [Suspect]
     Indication: FIBROMYALGIA

REACTIONS (31)
  - ARTERIAL THROMBOSIS [None]
  - BACTERAEMIA [None]
  - BIPOLAR DISORDER [None]
  - CEREBELLAR SYNDROME [None]
  - CEREBROVASCULAR ACCIDENT [None]
  - COMA [None]
  - CONVULSION [None]
  - DRUG DEPENDENCE [None]
  - DRUG INEFFECTIVE [None]
  - ENCEPHALOMALACIA [None]
  - GUN SHOT WOUND [None]
  - HEADACHE [None]
  - HEMIPARESIS [None]
  - HEMIPLEGIA [None]
  - HYPERTONIA [None]
  - INCONTINENCE [None]
  - KYPHOSIS [None]
  - MAJOR DEPRESSION [None]
  - MEMORY IMPAIRMENT [None]
  - MUSCULOSKELETAL PAIN [None]
  - PARAPARESIS [None]
  - PNEUMONIA [None]
  - PULMONARY CONGESTION [None]
  - RESPIRATORY FAILURE [None]
  - SINUS DISORDER [None]
  - SKIN ULCER [None]
  - SUBDURAL HAEMATOMA [None]
  - SUICIDE ATTEMPT [None]
  - TRAUMATIC BRAIN INJURY [None]
  - WOUND DEHISCENCE [None]
  - WOUND INFECTION [None]
